FAERS Safety Report 13313064 (Version 5)
Quarter: 2017Q2

REPORT INFORMATION
  Report Type: Spontaneous
  Country: US (occurrence: US)
  Receive Date: 20170309
  Receipt Date: 20170623
  Transmission Date: 20170830
  Serious: Yes (Hospitalization, Other)
  Sender: FDA-Public Use
  Company Number: US-PFIZER INC-2017095153

PATIENT
  Age: 82 Year
  Sex: Female
  Weight: 102 kg

DRUGS (4)
  1. IBRANCE [Suspect]
     Active Substance: PALBOCICLIB
     Indication: BREAST CANCER METASTATIC
     Dosage: 125 MG, CYCLIC, (ONCE DAILY FOR 21 DAYS ON, 7 DAYS OFF)
     Route: 048
     Dates: start: 201701
  2. IBRANCE [Suspect]
     Active Substance: PALBOCICLIB
     Dosage: 125 MG, CYCLIC(D1-D21 Q28 D)
     Route: 048
     Dates: start: 20170217
  3. IBRANCE [Suspect]
     Active Substance: PALBOCICLIB
     Dosage: 125 MG, CYCLIC (D1-D21 Q28 D)
     Route: 048
  4. IBRANCE [Suspect]
     Active Substance: PALBOCICLIB
     Dosage: 125 MG, CYCLIC (DAYS 1-21 OF 28 DAYS)
     Route: 048
     Dates: start: 20170217

REACTIONS (17)
  - Haemorrhage [Unknown]
  - Drug dose omission [Unknown]
  - Swollen tongue [Unknown]
  - Pharyngeal oedema [Unknown]
  - Pain [Recovering/Resolving]
  - Neuropathy peripheral [Unknown]
  - Upper-airway cough syndrome [Unknown]
  - Dyspnoea [Recovering/Resolving]
  - Weight decreased [Unknown]
  - Dysphagia [Recovering/Resolving]
  - Asthenia [Not Recovered/Not Resolved]
  - Wound [Unknown]
  - White blood cell count decreased [Unknown]
  - Productive cough [Unknown]
  - Hypersensitivity [Recovering/Resolving]
  - Accidental overdose [Unknown]
  - Fall [Unknown]

NARRATIVE: CASE EVENT DATE: 201704
